FAERS Safety Report 14744074 (Version 1)
Quarter: 2018Q2

REPORT INFORMATION
  Report Type: Spontaneous
  Country: US (occurrence: US)
  Receive Date: 20180411
  Receipt Date: 20180411
  Transmission Date: 20180711
  Serious: Yes (Other)
  Sender: FDA-Public Use
  Company Number: US-AMGEN-USASP2018044900

PATIENT
  Age: 74 Year
  Sex: Female

DRUGS (1)
  1. PROLIA [Suspect]
     Active Substance: DENOSUMAB
     Indication: OSTEOPOROSIS POSTMENOPAUSAL
     Dosage: 60 MG, UNK
     Route: 065
     Dates: start: 201502

REACTIONS (10)
  - Post procedural infection [Unknown]
  - Infection [Unknown]
  - Endodontic procedure [Unknown]
  - Impaired quality of life [Unknown]
  - Swelling face [Unknown]
  - Muscle disorder [Unknown]
  - Tooth extraction [Unknown]
  - Rash [Unknown]
  - Skin disorder [Unknown]
  - Myalgia [Unknown]
